FAERS Safety Report 7384691-1 (Version None)
Quarter: 2011Q1

REPORT INFORMATION
  Report Type: 
  Country: None (occurrence: None)
  Receive Date: 20110330
  Receipt Date: 20110316
  Transmission Date: 20110831
  Serious: Yes (Other)
  Sender: FDA-Public Use
  Company Number: PHHY2011US20674

PATIENT
  Sex: Male
  Weight: 71.111 kg

DRUGS (4)
  1. ZOMETA [Suspect]
     Indication: MULTIPLE MYELOMA
     Dosage: 3 MG, QMO
     Route: 042
     Dates: start: 20110204
  2. REVLIMID [Concomitant]
     Dosage: 5 MG, DAILY
     Route: 048
     Dates: start: 20101227
  3. PROCRIT [Concomitant]
     Dosage: 40000 UG, UNK
     Dates: start: 20110208
  4. VELCADE [Concomitant]
     Dosage: 2.3 MG, UNK
     Route: 042
     Dates: start: 20110125

REACTIONS (2)
  - BONE DISORDER [None]
  - ORAL DISORDER [None]
